FAERS Safety Report 9393620 (Version 1)
Quarter: 2013Q3

REPORT INFORMATION
  Report Type: Spontaneous
  Country: US (occurrence: US)
  Receive Date: 20130710
  Receipt Date: 20130710
  Transmission Date: 20140515
  Serious: No
  Sender: FDA-Public Use
  Company Number: US-009507513-1307USA005190

PATIENT
  Sex: Male
  Weight: 104.31 kg

DRUGS (4)
  1. MIRALAX [Suspect]
     Indication: CONSTIPATION
     Dosage: UNK, UNKNOWN
     Route: 048
  2. XARELTO [Concomitant]
     Indication: THROMBOSIS
     Dosage: UNK, UNKNOWN
  3. CRESTOR [Concomitant]
     Indication: BLOOD CHOLESTEROL
     Dosage: UNK, UNKNOWN
     Route: 048
  4. VESICARE [Concomitant]
     Indication: HYPERTONIC BLADDER
     Dosage: UNK, UNKNOWN

REACTIONS (3)
  - Underdose [Unknown]
  - Circumstance or information capable of leading to medication error [Unknown]
  - Therapeutic response decreased [Unknown]
